FAERS Safety Report 24574648 (Version 2)
Quarter: 2025Q3

REPORT INFORMATION
  Report Type: Spontaneous
  Country: US (occurrence: US)
  Receive Date: 20241104
  Receipt Date: 20250810
  Transmission Date: 20251021
  Serious: No
  Sender: ALEXION PHARMACEUTICALS
  Company Number: US-AstraZeneca-CH-00739883A

PATIENT
  Sex: Male
  Weight: 127 kg

DRUGS (1)
  1. FARXIGA [Suspect]
     Active Substance: DAPAGLIFLOZIN PROPANEDIOL
     Indication: Cardiac failure
     Dosage: 10 MILLIGRAM, QD
     Dates: start: 20241011, end: 20241011

REACTIONS (1)
  - Pruritus [Unknown]
